FAERS Safety Report 11501234 (Version 1)
Quarter: 2015Q3

REPORT INFORMATION
  Report Type: Spontaneous
  Country: US (occurrence: US)
  Receive Date: 20150903
  Receipt Date: 20150903
  Transmission Date: 20151125
  Serious: No
  Sender: FDA-Public Use
  Company Number: US-ELI_LILLY_AND_COMPANY-US200908000581

PATIENT
  Sex: Female

DRUGS (3)
  1. GLUMETZA [Concomitant]
     Active Substance: METFORMIN HYDROCHLORIDE
  2. HUMALOG MIX75/25 [Suspect]
     Active Substance: INSULIN LISPRO
     Dosage: 25 U, AS NEEDED
     Dates: start: 200907
  3. HUMALOG [Suspect]
     Active Substance: INSULIN LISPRO

REACTIONS (8)
  - Injury associated with device [Recovered/Resolved]
  - Incorrect dose administered [Recovered/Resolved]
  - Intercepted drug dispensing error [Recovered/Resolved]
  - Blood glucose increased [Recovered/Resolved]
  - Dizziness [Recovered/Resolved]
  - Hot flush [Recovered/Resolved]
  - Headache [Recovered/Resolved]
  - Nervousness [Recovered/Resolved]

NARRATIVE: CASE EVENT DATE: 200907
